FAERS Safety Report 15768682 (Version 1)
Quarter: 2018Q4

REPORT INFORMATION
  Report Type: Spontaneous
  Country: US (occurrence: US)
  Receive Date: 20181228
  Receipt Date: 20181228
  Transmission Date: 20190205
  Serious: No
  Sender: FDA-Public Use
  Company Number: US-009507513-1812USA000037

PATIENT
  Sex: Male

DRUGS (3)
  1. PROVENTIL [Suspect]
     Active Substance: ALBUTEROL
     Dosage: UNIT 1
  2. PROVENTIL [Suspect]
     Active Substance: ALBUTEROL
     Dosage: UNIT 2
     Dates: start: 2018, end: 2018
  3. PROVENTIL [Suspect]
     Active Substance: ALBUTEROL
     Dosage: UNIT 3
     Dates: start: 2018, end: 2018

REACTIONS (5)
  - Device malfunction [Unknown]
  - Incorrect dose administered [Unknown]
  - Device malfunction [Unknown]
  - No adverse event [Unknown]
  - Incorrect dose administered [Unknown]

NARRATIVE: CASE EVENT DATE: 2018
